FAERS Safety Report 18869121 (Version 1)
Quarter: 2021Q1

REPORT INFORMATION
  Report Type: Spontaneous
  Country: MX (occurrence: MX)
  Receive Date: 20210209
  Receipt Date: 20210209
  Transmission Date: 20210420
  Serious: Yes (Hospitalization, Other)
  Sender: FDA-Public Use
  Company Number: MX-GLAXOSMITHKLINE-MXCH2021GSK003416

PATIENT
  Age: 31 Year
  Sex: Female

DRUGS (2)
  1. IBUPROFEN. [Suspect]
     Active Substance: IBUPROFEN
     Indication: ARTHRITIS REACTIVE
     Dosage: UNK
  2. KETOROLAC [Suspect]
     Active Substance: KETOROLAC TROMETHAMINE
     Indication: ARTHRITIS REACTIVE
     Dosage: UNK

REACTIONS (9)
  - Urinary tract inflammation [Recovered/Resolved]
  - Renal papillary necrosis [Recovered/Resolved]
  - Renal colic [Recovered/Resolved]
  - Pain [Recovered/Resolved]
  - Urine abnormality [Not Recovered/Not Resolved]
  - Back pain [Recovered/Resolved]
  - Hydronephrosis [Recovered/Resolved]
  - Enterococcal infection [Unknown]
  - Disease recurrence [Recovered/Resolved]
